FAERS Safety Report 14274333 (Version 8)
Quarter: 2018Q2

REPORT INFORMATION
  Report Type: Spontaneous
  Country: DE (occurrence: DE)
  Receive Date: 20171211
  Receipt Date: 20180516
  Transmission Date: 20180711
  Serious: Yes (Hospitalization, Other)
  Sender: FDA-Public Use
  Company Number: DE-OTSUKA-DJ20113235

PATIENT
  Age: 19 Year
  Sex: Female
  Weight: 115 kg

DRUGS (2)
  1. ZYRTEC [Suspect]
     Active Substance: CETIRIZINE HYDROCHLORIDE
     Indication: SEASONAL ALLERGY
     Dosage: UNK
     Route: 065
     Dates: start: 201103, end: 20110407
  2. ABILIFY [Suspect]
     Active Substance: ARIPIPRAZOLE
     Indication: SCHIZOAFFECTIVE DISORDER
     Dosage: 5 MG, QD (ONCE DAILY)
     Route: 048
     Dates: start: 20090601, end: 20110407

REACTIONS (10)
  - Vaginal haemorrhage [Recovered/Resolved]
  - Gestational diabetes [Unknown]
  - Maternal exposure during pregnancy [Unknown]
  - Genital rash [Unknown]
  - Normal newborn [Unknown]
  - Streptococcus test positive [Unknown]
  - Constipation [Unknown]
  - Exposure via body fluid [Unknown]
  - Oedema [Unknown]
  - Product use in unapproved indication [Unknown]

NARRATIVE: CASE EVENT DATE: 20090601
